FAERS Safety Report 17855927 (Version 1)
Quarter: 2020Q2

REPORT INFORMATION
  Report Type: Spontaneous
  Country: GB (occurrence: GB)
  Receive Date: 20200603
  Receipt Date: 20200603
  Transmission Date: 20200714
  Serious: Yes (Other)
  Sender: FDA-Public Use
  Company Number: GB-MYLANLABS-2020M1053472

PATIENT
  Age: 69 Year
  Sex: Female
  Weight: 47 kg

DRUGS (2)
  1. CIPROFLOXACIN. [Suspect]
     Active Substance: CIPROFLOXACIN
     Indication: PRODUCT USED FOR UNKNOWN INDICATION
     Dosage: 100 MILLIGRAM
     Route: 048
  2. FLUCONAZOLE. [Concomitant]
     Active Substance: FLUCONAZOLE
     Dosage: 150 MILLIGRAM, QD, AND ONE WHEN SYMPTOMS REOCCUR
     Dates: start: 20200312

REACTIONS (3)
  - Aggression [Unknown]
  - Suicidal ideation [Unknown]
  - Hallucination [Recovered/Resolved]

NARRATIVE: CASE EVENT DATE: 20200420
